FAERS Safety Report 7974109-X (Version None)
Quarter: 2011Q4

REPORT INFORMATION
  Report Type: 
  Country: None (occurrence: None)
  Receive Date: 20111213
  Receipt Date: 20111208
  Transmission Date: 20120403
  Serious: Yes (Life-Threatening, Hospitalization, Other)
  Sender: FDA-Public Use
  Company Number: PHHY2011GB103464

PATIENT
  Age: 80 Year
  Sex: Female

DRUGS (8)
  1. TEMAZEPAM [Concomitant]
  2. ATENOLOL [Concomitant]
  3. TAFLUPROST [Concomitant]
  4. LANSOPRAZOLE [Concomitant]
  5. CITALOPRAM [Suspect]
     Indication: DEPRESSION
     Dosage: 40 MG, UNK
     Dates: start: 20001001, end: 20111108
  6. CARBOMER [Concomitant]
  7. ACETAMINOPHEN AND CODEINE PHOSPHATE [Concomitant]
  8. PRAVASTATIN [Concomitant]

REACTIONS (7)
  - HAEMATEMESIS [None]
  - HYPOVOLAEMIA [None]
  - BLOOD PRESSURE DECREASED [None]
  - MELAENA [None]
  - DIZZINESS [None]
  - INTRA-ABDOMINAL HAEMORRHAGE [None]
  - GASTROINTESTINAL HAEMORRHAGE [None]
